FAERS Safety Report 5706955-7 (Version None)
Quarter: 2008Q2

REPORT INFORMATION
  Report Type: 
  Country: None (occurrence: None)
  Receive Date: 20080416
  Receipt Date: 20080402
  Transmission Date: 20081010
  Serious: No
  Sender: FDA-Public Use
  Company Number: CH-AMGEN-UK268787

PATIENT
  Sex: Male
  Weight: 68 kg

DRUGS (5)
  1. NEULASTA [Suspect]
     Indication: CHEMOTHERAPY
     Route: 058
     Dates: start: 20080116
  2. CLADRIBINE [Concomitant]
     Route: 058
     Dates: start: 20080110, end: 20080115
  3. NEXIUM [Concomitant]
     Route: 048
  4. SERTRALINE [Concomitant]
     Route: 048
  5. LORAZEPAM [Concomitant]
     Route: 048

REACTIONS (1)
  - NEUTROPENIA [None]
